FAERS Safety Report 13314875 (Version 3)
Quarter: 2017Q2

REPORT INFORMATION
  Report Type: Report from Study
  Country: US (occurrence: US)
  Receive Date: 20170309
  Receipt Date: 20170411
  Transmission Date: 20170830
  Serious: No
  Sender: FDA-Public Use
  Company Number: US-AMGEN-USASL2017031147

PATIENT
  Age: 61 Year
  Sex: Female

DRUGS (3)
  1. ENBREL [Suspect]
     Active Substance: ETANERCEPT
     Indication: SPONDYLOARTHROPATHY
     Dosage: UNK
     Route: 065
     Dates: start: 2015
  2. ENBREL [Suspect]
     Active Substance: ETANERCEPT
     Indication: ARTHRITIS
     Dosage: 25 MG, 2 TIMES/WK
     Route: 065
  3. ENBREL [Suspect]
     Active Substance: ETANERCEPT
     Indication: PSORIATIC ARTHROPATHY

REACTIONS (11)
  - Wrong technique in product usage process [Unknown]
  - Back injury [Not Recovered/Not Resolved]
  - Contusion [Unknown]
  - Muscle spasms [Not Recovered/Not Resolved]
  - Drug prescribing error [Unknown]
  - Off label use [Unknown]
  - Fall [Unknown]
  - Drug dispensing error [Unknown]
  - Intentional product misuse [Unknown]
  - Myalgia [Not Recovered/Not Resolved]
  - Injection site pain [Unknown]

NARRATIVE: CASE EVENT DATE: 201702
